FAERS Safety Report 11148954 (Version 3)
Quarter: 2018Q2

REPORT INFORMATION
  Report Type: Spontaneous
  Country: US (occurrence: US)
  Receive Date: 20150529
  Receipt Date: 20180614
  Transmission Date: 20180711
  Serious: Yes (Hospitalization, Other)
  Sender: FDA-Public Use
  Company Number: PHHY2015US010045

PATIENT
  Sex: Male

DRUGS (12)
  1. LIORESAL [Suspect]
     Active Substance: BACLOFEN
     Dosage: 30 UG/BOLUS
     Route: 037
  2. EFFEXOR XR [Concomitant]
     Active Substance: VENLAFAXINE HYDROCHLORIDE
     Indication: PRODUCT USED FOR UNKNOWN INDICATION
     Dosage: 75 MG, QD
     Route: 065
  3. LIORESAL [Suspect]
     Active Substance: BACLOFEN
     Dosage: 931.8 UG, QD
     Route: 037
  4. VIMPAT [Suspect]
     Active Substance: LACOSAMIDE
     Indication: SEIZURE
     Dosage: UNK
     Route: 065
  5. LIORESAL [Suspect]
     Active Substance: BACLOFEN
     Indication: MUSCLE SPASTICITY
     Dosage: 968.7 UG, QD
     Route: 037
  6. LIORESAL [Suspect]
     Active Substance: BACLOFEN
     Dosage: 806.3 UG, QD
     Route: 037
     Dates: start: 20180501
  7. LIORESAL [Suspect]
     Active Substance: BACLOFEN
     Dosage: 968.7 UG, QD
     Route: 037
     Dates: start: 20141211
  8. LIORESAL [Suspect]
     Active Substance: BACLOFEN
     Dosage: 1017.7 UG, QD
     Route: 037
     Dates: start: 20150326
  9. EFFEXOR XR [Concomitant]
     Active Substance: VENLAFAXINE HYDROCHLORIDE
     Dosage: UNK (INCREASED DOSE)
     Route: 065
  10. CARBAMAZEPINE. [Suspect]
     Active Substance: CARBAMAZEPINE
     Indication: SEIZURE
     Dosage: UNK
     Route: 065
  11. LIORESAL [Suspect]
     Active Substance: BACLOFEN
     Dosage: 50 UG/BOLUS
     Route: 037
  12. LEXAPRO [Suspect]
     Active Substance: ESCITALOPRAM OXALATE
     Indication: PRODUCT USED FOR UNKNOWN INDICATION
     Dosage: UNK
     Route: 048

REACTIONS (20)
  - Asterixis [Unknown]
  - Headache [Unknown]
  - Drug withdrawal syndrome [Recovered/Resolved]
  - Arthralgia [Unknown]
  - Lethargy [Unknown]
  - Vision blurred [Unknown]
  - Tremor [Recovered/Resolved]
  - Asthenia [Unknown]
  - Mood altered [Unknown]
  - Urinary retention [Unknown]
  - Amnesia [Unknown]
  - Sleep disorder [Unknown]
  - Pollakiuria [Unknown]
  - Micturition urgency [Unknown]
  - Somnolence [Unknown]
  - Seizure [Unknown]
  - Device damage [Unknown]
  - Loss of consciousness [Unknown]
  - Dizziness [Unknown]
  - Memory impairment [Unknown]

NARRATIVE: CASE EVENT DATE: 2010
